FAERS Safety Report 23235632 (Version 1)
Quarter: 2023Q4

REPORT INFORMATION
  Report Type: Spontaneous
  Country: US (occurrence: None)
  Receive Date: 20231128
  Receipt Date: 20231128
  Transmission Date: 20240109
  Serious: Yes (Hospitalization)
  Sender: FDA-Public Use
  Company Number: None

PATIENT
  Age: 13 Month
  Sex: Male

DRUGS (2)
  1. AMINOCAPROIC ACID [Suspect]
     Active Substance: AMINOCAPROIC ACID
     Indication: Factor VIII deficiency
     Dosage: 500MG PRN ORAL?
     Route: 048
     Dates: start: 202310
  2. HEMLIBRA SDV [Concomitant]

REACTIONS (2)
  - Rhinovirus infection [None]
  - Central venous catheterisation [None]

NARRATIVE: CASE EVENT DATE: 20231016
